FAERS Safety Report 5987602-6 (Version None)
Quarter: 2008Q4

REPORT INFORMATION
  Report Type: 
  Country: None (occurrence: None)
  Receive Date: 20081209
  Receipt Date: 20081205
  Transmission Date: 20090506
  Serious: Yes (Other)
  Sender: FDA-Public Use
  Company Number: US-KINGPHARMUSA00001-K200801380

PATIENT
  Age: 76 Year
  Sex: Male

DRUGS (9)
  1. ALTACE [Suspect]
     Dosage: 2.5 MG, QD
     Route: 048
  2. AMLODIPINE [Suspect]
     Dosage: 5 MG, QD
  3. OMEPRAZOLE [Suspect]
     Dosage: 20 MG, QD
  4. SERETIDE                           /01420901/ [Suspect]
     Indication: ASTHMA
     Dosage: 1 DF, BID
     Dates: start: 20051208
  5. SIMVASTATIN [Suspect]
     Dosage: 20 MG, QD
  6. TAMSULOSIN HCL [Suspect]
     Dosage: 500 MG, QD
  7. THEOPHYLLINE [Suspect]
     Dosage: 300 MG, QD
  8. TIOTROPIUM BROMIDE [Suspect]
     Dosage: 1 DF, QD
  9. VENTOLIN [Suspect]
     Indication: ASTHMA
     Dosage: UNK

REACTIONS (4)
  - ASTHMA [None]
  - DYSPNOEA [None]
  - MEMORY IMPAIRMENT [None]
  - TRANSIENT ISCHAEMIC ATTACK [None]
